FAERS Safety Report 4863803-5 (Version None)
Quarter: 2005Q4

REPORT INFORMATION
  Report Type: 
  Country: None (occurrence: None)
  Receive Date: 20051222
  Receipt Date: 20050907
  Transmission Date: 20060501
  Serious: No
  Sender: FDA-Public Use
  Company Number: US-GLAXOSMITHKLINE-A0573326A

PATIENT
  Age: 7 Year
  Sex: Female

DRUGS (1)
  1. FLONASE [Suspect]
     Indication: DRUG USE FOR UNKNOWN INDICATION
     Route: 065
     Dates: start: 20050801, end: 20050904

REACTIONS (4)
  - DIZZINESS [None]
  - GLOSSODYNIA [None]
  - RHINORRHOEA [None]
  - VISION BLURRED [None]
